FAERS Safety Report 6366615-9 (Version None)
Quarter: 2009Q3

REPORT INFORMATION
  Report Type: 
  Country: None (occurrence: None)
  Receive Date: 20090921
  Receipt Date: 20090910
  Transmission Date: 20100115
  Serious: Yes (Other)
  Sender: FDA-Public Use
  Company Number: PHHY2009JP26711

PATIENT
  Weight: 47 kg

DRUGS (11)
  1. NEORAL [Suspect]
     Indication: PYODERMA GANGRENOSUM
     Dosage: 100 MG, BID
     Route: 048
     Dates: start: 20090625, end: 20090722
  2. PREDONINE [Concomitant]
     Indication: PYODERMA GANGRENOSUM
     Dosage: 45 MG
     Route: 048
     Dates: start: 20090430
  3. PREDONINE [Concomitant]
     Dosage: 40 TO 50 MG
     Route: 048
     Dates: start: 20090430
  4. ASPIRIN [Concomitant]
     Dosage: 100 MG
     Route: 048
     Dates: start: 20090608
  5. PLAVIX [Concomitant]
     Dosage: 75 MG
     Route: 048
     Dates: start: 20090608
  6. MINOCYCLINE HCL [Concomitant]
     Dosage: 200 MG
     Route: 048
     Dates: start: 20090430, end: 20090710
  7. TAKEPRON [Concomitant]
     Dosage: 30 MG
     Route: 048
     Dates: start: 20090430, end: 20090710
  8. ROCALTROL [Concomitant]
     Dosage: 0.5 MICROGRAM
     Route: 048
  9. CALCIUM COMPOUNDS [Concomitant]
     Dosage: 4 G
     Route: 048
  10. LIPOVAS [Concomitant]
     Dosage: 10 MG
     Route: 048
  11. MUCOSTA [Concomitant]
     Route: 048

REACTIONS (3)
  - HYPERKALAEMIA [None]
  - MALAISE [None]
  - METABOLIC ACIDOSIS [None]
